FAERS Safety Report 8103008-8 (Version None)
Quarter: 2012Q1

REPORT INFORMATION
  Report Type: 
  Country: None (occurrence: None)
  Receive Date: 20120127
  Receipt Date: 20120117
  Transmission Date: 20120608
  Serious: Yes (Death)
  Sender: FDA-Public Use
  Company Number: FK201200150

PATIENT
  Age: 22 Year
  Sex: Male

DRUGS (2)
  1. METHAMPHETAMINE HYDROCHLORIDE [Suspect]
     Indication: PRODUCT USED FOR UNKNOWN INDICATION
     Dosage: UNKNOWN, UNKNOWN, PARENTERAL UNKNOWN, UNKNOWN, ORAL UNKNOWN, UNKNOWN, RESPIRATORY (INHALATION)
  2. METOPROLOL TARTRATE [Suspect]
     Indication: INTENTIONAL DRUG MISUSE
     Dosage: UNKNOWN, UNKNOWN, PARENTERAL UNKNOWN, UNKNOWN, ORAL UNKNOWN, UNKNOWN, RESPIRATORY (INHALATION)

REACTIONS (2)
  - INTENTIONAL DRUG MISUSE [None]
  - DRUG ABUSE [None]
